FAERS Safety Report 15307844 (Version 1)
Quarter: 2018Q4

REPORT INFORMATION
  Report Type: Spontaneous
  Country: FR (occurrence: FR)
  Receive Date: 20180822
  Receipt Date: 20180822
  Transmission Date: 20190204
  Serious: Yes (Hospitalization)
  Sender: FDA-Public Use
  Company Number: FR-ASTRAZENECA-2018SF04445

PATIENT
  Age: 28 Year
  Sex: Female
  Weight: 106 kg

DRUGS (7)
  1. PARACETAMOL [Suspect]
     Active Substance: ACETAMINOPHEN
     Indication: PAIN
     Dosage: NON RENSEIGNEE
     Route: 048
     Dates: start: 20180720, end: 20180730
  2. PROFENID [Suspect]
     Active Substance: KETOPROFEN
     Indication: PAIN
     Dosage: 100.0MG UNKNOWN
     Route: 042
     Dates: start: 20180723, end: 20180730
  3. LOVENOX [Suspect]
     Active Substance: ENOXAPARIN SODIUM
     Indication: THROMBOSIS PROPHYLAXIS
     Dosage: NON RENSEIGNEE
     Route: 058
     Dates: start: 20180723, end: 20180730
  4. BIPROFENID LP [Suspect]
     Active Substance: KETOPROFEN
     Indication: PAIN
     Route: 048
     Dates: start: 20180723, end: 20180730
  5. INEXIUM [Suspect]
     Active Substance: ESOMEPRAZOLE
     Indication: PROPHYLAXIS
     Route: 048
     Dates: start: 20180722, end: 20180730
  6. CLAMOXYL (AMOXICILLIN) [Suspect]
     Active Substance: AMOXICILLIN
     Indication: PREMATURE RUPTURE OF MEMBRANES
     Dosage: NON AZ , 3 G DAILY
     Route: 048
     Dates: start: 20180720, end: 20180723
  7. SPASFON (TRIMETHYLPHLOROGLUCINOL/PHLOROGLUCINOL) [Suspect]
     Active Substance: PHLOROGLUCINOL\1,3,5-TRIMETHOXYBENZENE
     Indication: ABDOMINAL RIGIDITY
     Dosage: NON RENSEIGNEE
     Route: 048
     Dates: start: 20180720, end: 20180730

REACTIONS (1)
  - Acute generalised exanthematous pustulosis [Recovered/Resolved]

NARRATIVE: CASE EVENT DATE: 20180728
